FAERS Safety Report 6329446-1 (Version None)
Quarter: 2009Q3

REPORT INFORMATION
  Report Type: 
  Country: None (occurrence: None)
  Receive Date: 20090826
  Receipt Date: 20090820
  Transmission Date: 20100115
  Serious: Yes (Hospitalization)
  Sender: FDA-Public Use
  Company Number: B0589452A

PATIENT
  Age: 88 Year
  Sex: Female

DRUGS (7)
  1. ARIXTRA [Suspect]
     Indication: ATRIAL FIBRILLATION
     Dosage: 7.5MG PER DAY
     Route: 058
     Dates: start: 20090608, end: 20090630
  2. PREVISCAN [Concomitant]
     Indication: DRUG USE FOR UNKNOWN INDICATION
     Route: 065
     Dates: start: 20090625
  3. ALDALIX [Concomitant]
     Indication: DRUG USE FOR UNKNOWN INDICATION
     Dosage: 50MG UNKNOWN
     Route: 048
  4. NITROGLYCERIN [Concomitant]
     Indication: DRUG USE FOR UNKNOWN INDICATION
     Route: 065
  5. ATENOLOL [Concomitant]
     Indication: DRUG USE FOR UNKNOWN INDICATION
     Route: 065
  6. FENOFIBRATE [Concomitant]
     Indication: DRUG USE FOR UNKNOWN INDICATION
     Route: 065
  7. DI ANTALVIC [Concomitant]
     Indication: DRUG USE FOR UNKNOWN INDICATION
     Route: 048

REACTIONS (6)
  - CONFUSIONAL STATE [None]
  - DRUG ERUPTION [None]
  - OFF LABEL USE [None]
  - PROTHROMBIN LEVEL DECREASED [None]
  - RASH GENERALISED [None]
  - RASH MACULO-PAPULAR [None]
